FAERS Safety Report 9911478 (Version 1)
Quarter: 2014Q1

REPORT INFORMATION
  Report Type: Spontaneous
  Country: US (occurrence: US)
  Receive Date: 20140219
  Receipt Date: 20140219
  Transmission Date: 20141002
  Serious: Yes (Other)
  Sender: FDA-Public Use
  Company Number: GXBR2014US000685

PATIENT
  Sex: Male
  Weight: 70.3 kg

DRUGS (4)
  1. RISPERIDONE [Suspect]
     Indication: ANXIETY
     Dosage: UNK MG, UNK
     Dates: start: 2011
  2. RISPERIDONE [Suspect]
     Indication: MENTAL DISORDER
  3. RISPERIDONE [Suspect]
     Dosage: UNK DF, UNK
     Route: 065
     Dates: start: 2011
  4. ALBUTEROL [Concomitant]
     Dosage: UNK DF, UNK
     Route: 055

REACTIONS (5)
  - Hepatic cancer stage IV [Not Recovered/Not Resolved]
  - Hepatic pain [Unknown]
  - Abdominal distension [Unknown]
  - Asthenia [Unknown]
  - Breast swelling [Recovered/Resolved]
